FAERS Safety Report 7022729-1 (Version None)
Quarter: 2010Q3

REPORT INFORMATION
  Report Type: 
  Country: None (occurrence: None)
  Receive Date: 20100930
  Receipt Date: 20100927
  Transmission Date: 20110219
  Serious: Yes (Death)
  Sender: FDA-Public Use
  Company Number: A0872725A

PATIENT
  Age: 60 Year
  Sex: Female
  Weight: 79.5 kg

DRUGS (2)
  1. TYKERB [Suspect]
     Indication: PRODUCT USED FOR UNKNOWN INDICATION
     Dosage: 1250MGD PER DAY
     Route: 048
     Dates: start: 20100318
  2. XELODA [Suspect]
     Indication: PRODUCT USED FOR UNKNOWN INDICATION
     Route: 065
     Dates: start: 20100318

REACTIONS (2)
  - MALIGNANT NEOPLASM PROGRESSION [None]
  - METASTASIS [None]
